FAERS Safety Report 7372726-1 (Version None)
Quarter: 2011Q1

REPORT INFORMATION
  Report Type: 
  Country: None (occurrence: None)
  Receive Date: 20110324
  Receipt Date: 20110310
  Transmission Date: 20110831
  Serious: Yes (Other)
  Sender: FDA-Public Use
  Company Number: RU-ELI_LILLY_AND_COMPANY-RU201103006412

PATIENT
  Sex: Female

DRUGS (1)
  1. BYETTA [Suspect]
     Dosage: UNK UNK, UNKNOWN
     Route: 065

REACTIONS (2)
  - GASTRITIS HAEMORRHAGIC [None]
  - DECREASED APPETITE [None]
